FAERS Safety Report 6335185-3 (Version None)
Quarter: 2009Q3

REPORT INFORMATION
  Report Type: 
  Country: None (occurrence: None)
  Receive Date: 20090828
  Receipt Date: 20090828
  Transmission Date: 20100115
  Serious: Yes (Other)
  Sender: FDA-Public Use
  Company Number: None

PATIENT
  Age: 37 Year
  Sex: Female
  Weight: 82.7 kg

DRUGS (2)
  1. FLUOXETINE [Suspect]
     Indication: ANXIETY
     Dosage: 40MG 1 TIME DAILY
     Dates: start: 20040101
  2. FLUOXETINE [Suspect]
     Indication: DEPRESSION
     Dosage: 40MG 1 TIME DAILY
     Dates: start: 20040101

REACTIONS (6)
  - DRUG DISPENSING ERROR [None]
  - DRUG LABEL CONFUSION [None]
  - INCORRECT DOSE ADMINISTERED [None]
  - MENTAL DISORDER [None]
  - PRODUCT COMMINGLING [None]
  - THINKING ABNORMAL [None]
